FAERS Safety Report 8680585 (Version 2)
Quarter: 2014Q3

REPORT INFORMATION
  Report Type: Spontaneous
  Country: FR (occurrence: FR)
  Receive Date: 20120724
  Receipt Date: 20140930
  Transmission Date: 20150326
  Serious: Yes (Life-Threatening)
  Sender: FDA-Public Use
  Company Number: FR-ASTRAZENECA-2012SE50637

PATIENT
  Age: 29766 Day
  Sex: Male

DRUGS (3)
  1. SUFENTANYL MYLAN [Suspect]
     Active Substance: SUFENTANIL
     Indication: ANAESTHESIA
     Route: 042
     Dates: start: 20120612, end: 20120612
  2. DIPRIVAN [Suspect]
     Active Substance: PROPOFOL
     Indication: ANAESTHESIA
     Route: 042
     Dates: start: 20120612, end: 20120612
  3. TRACRIUM [Suspect]
     Active Substance: ATRACURIUM BESYLATE
     Indication: ANAESTHESIA
     Route: 042
     Dates: start: 20120612, end: 20120612

REACTIONS (6)
  - Anaphylactic shock [Recovered/Resolved]
  - Rash [None]
  - Haemodynamic instability [None]
  - Bradycardia [None]
  - Hypotension [None]
  - Tachycardia [None]

NARRATIVE: CASE EVENT DATE: 20120612
